FAERS Safety Report 5507356-7 (Version None)
Quarter: 2007Q4

REPORT INFORMATION
  Report Type: 
  Country: None (occurrence: None)
  Receive Date: 20071106
  Receipt Date: 20071101
  Transmission Date: 20080405
  Serious: Yes (Death)
  Sender: FDA-Public Use
  Company Number: PHBS2007NL18285

PATIENT
  Age: 75 Year
  Sex: Male

DRUGS (4)
  1. SANDOSTATIN [Suspect]
     Indication: CARCINOID SYNDROME
  2. ACENOCOUMAROL (NGX) [Suspect]
     Dosage: 1 MG/D
     Route: 048
  3. EMCOR [Concomitant]
     Dosage: 5 MG/D
  4. INHIBIN ^AMSTERDAMSE CHININEFABRIK^ [Concomitant]
     Dosage: 100 MG/D
     Route: 048

REACTIONS (3)
  - DEATH [None]
  - DRUG INTERACTION [None]
  - INTERNATIONAL NORMALISED RATIO INCREASED [None]
